FAERS Safety Report 8890080 (Version 1)
Quarter: 2012Q4

REPORT INFORMATION
  Report Type: 
  Country: CA (occurrence: CA)
  Receive Date: 20121106
  Receipt Date: 20121106
  Transmission Date: 20130627
  Serious: Yes (Hospitalization)
  Sender: FDA-Public Use
  Company Number: PHMT2007CA01516

PATIENT
  Sex: Male

DRUGS (1)
  1. SANDOSTATIN LAR [Suspect]
     Dosage: 20 mg, QMO
     Route: 030
     Dates: start: 20061130, end: 20070523

REACTIONS (12)
  - Pituitary tumour [Unknown]
  - Memory impairment [Unknown]
  - Amnesia [Unknown]
  - Abulia [Unknown]
  - Loss of libido [Unknown]
  - Libido decreased [Unknown]
  - Erythema [Unknown]
  - Night sweats [Recovering/Resolving]
  - Decreased appetite [Unknown]
  - Diarrhoea [Unknown]
  - Injection site pain [Unknown]
  - Nausea [Unknown]
